FAERS Safety Report 8030868-1 (Version None)
Quarter: 2011Q4

REPORT INFORMATION
  Report Type: 
  Country: None (occurrence: None)
  Receive Date: 20111202
  Receipt Date: 20100913
  Transmission Date: 20120403
  Serious: Yes (Hospitalization)
  Sender: FDA-Public Use
  Company Number: 2010SP048873

PATIENT
  Age: 24 Year
  Sex: Female
  Weight: 77.1115 kg

DRUGS (7)
  1. EFFEXOR XR [Concomitant]
  2. EXCEDRIN (MIGRAINE) [Concomitant]
  3. ACETAMINOPHEN [Concomitant]
  4. PROPOXYPHENE HYDROCHLORIDE [Concomitant]
  5. ALBUTEROL INHALER [Concomitant]
  6. NUVARING [Suspect]
     Indication: CONTRACEPTION
     Dates: start: 20080201, end: 20080901
  7. FLEXERIL [Concomitant]

REACTIONS (8)
  - NAUSEA [None]
  - PULMONARY EMBOLISM [None]
  - HYPERCOAGULATION [None]
  - HEADACHE [None]
  - VOMITING [None]
  - DRUG HYPERSENSITIVITY [None]
  - ABDOMINAL PAIN [None]
  - DEPRESSION [None]
